FAERS Safety Report 7820959-X (Version None)
Quarter: 2011Q4

REPORT INFORMATION
  Report Type: 
  Country: None (occurrence: None)
  Receive Date: 20111018
  Receipt Date: 20111005
  Transmission Date: 20120403
  Serious: Yes (Other)
  Sender: FDA-Public Use
  Company Number: US-CELGENEUS-163-21880-11100584

PATIENT
  Age: 42 Year
  Sex: Male
  Weight: 84.8 kg

DRUGS (1)
  1. REVLIMID [Suspect]
     Indication: KAPOSI'S SARCOMA AIDS RELATED
     Dosage: 25 MILLIGRAM
     Route: 048
     Dates: start: 20110906, end: 20110917

REACTIONS (1)
  - FACIAL NERVE DISORDER [None]
